FAERS Safety Report 5674613-3 (Version None)
Quarter: 2008Q1

REPORT INFORMATION
  Report Type: 
  Country: None (occurrence: None)
  Receive Date: 20080320
  Receipt Date: 20080311
  Transmission Date: 20080703
  Serious: Yes (Other)
  Sender: FDA-Public Use
  Company Number: GB-JNJFOC-20080304072

PATIENT
  Age: 63 Year
  Sex: Female
  Weight: 91 kg

DRUGS (4)
  1. TRAMADOL HCL [Suspect]
     Indication: SCIATICA
     Route: 048
  2. ASPIRIN [Concomitant]
     Route: 065
  3. ATENOLOL [Concomitant]
     Route: 065
  4. PERINDOPRIL [Concomitant]
     Route: 065

REACTIONS (1)
  - GLOBAL AMNESIA [None]
